FAERS Safety Report 4929573-7 (Version None)
Quarter: 2006Q1

REPORT INFORMATION
  Report Type: 
  Country: None (occurrence: None)
  Receive Date: 20060224
  Receipt Date: 20060213
  Transmission Date: 20060701
  Serious: Yes (Hospitalization)
  Sender: FDA-Public Use
  Company Number: 163-21880-06020002

PATIENT
  Age: 74 Year
  Sex: Male

DRUGS (1)
  1. REVLIMID [Suspect]
     Indication: MYELODYSPLASTIC SYNDROME
     Dosage: 10 MG, DAILY, ORAL
     Route: 048
     Dates: start: 20060118

REACTIONS (7)
  - CONSTIPATION [None]
  - DIARRHOEA [None]
  - PLATELET COUNT DECREASED [None]
  - PROCTALGIA [None]
  - PYREXIA [None]
  - RECTAL ULCER [None]
  - WHITE BLOOD CELL COUNT DECREASED [None]
